FAERS Safety Report 19687176 (Version 1)
Quarter: 2021Q3

REPORT INFORMATION
  Report Type: Report from Study
  Country: DE (occurrence: DE)
  Receive Date: 20210811
  Receipt Date: 20210811
  Transmission Date: 20211014
  Serious: Yes (Hospitalization, Other)
  Sender: FDA-Public Use
  Company Number: DE-TAKEDA-DE201845478

PATIENT

DRUGS (12)
  1. TEDUGLUTIDE [Suspect]
     Active Substance: TEDUGLUTIDE
     Dosage: 3 MG (0.05 DAILY DOSE MG KG AND 7 DOSES PER WEEK), UNK
     Route: 065
     Dates: start: 201807
  2. TEDUGLUTIDE [Suspect]
     Active Substance: TEDUGLUTIDE
     Indication: SHORT-BOWEL SYNDROME
     Dosage: 2.65 MG (0.05 OF DAILY DOSE MG KG AND 7 DOSES PER WEEK), UNK
     Route: 065
     Dates: start: 20180306, end: 201807
  3. TEDUGLUTIDE [Suspect]
     Active Substance: TEDUGLUTIDE
     Dosage: 3 MG (0.05 DAILY DOSE MG KG AND 7 DOSES PER WEEK), UNK
     Route: 065
     Dates: start: 201807
  4. TEDUGLUTIDE [Suspect]
     Active Substance: TEDUGLUTIDE
     Dosage: 3 MG (0.05 DAILY DOSE MG KG AND 7 DOSES PER WEEK), UNK
     Route: 065
     Dates: start: 201807
  5. NEPHROTRANS [Concomitant]
     Active Substance: SODIUM BICARBONATE
     Indication: PRODUCT USED FOR UNKNOWN INDICATION
  6. TEDUGLUTIDE [Suspect]
     Active Substance: TEDUGLUTIDE
     Indication: SHORT-BOWEL SYNDROME
     Dosage: 2.65 MG (0.05 OF DAILY DOSE MG KG AND 7 DOSES PER WEEK), UNK
     Route: 065
     Dates: start: 20180306, end: 201807
  7. TEDUGLUTIDE [Suspect]
     Active Substance: TEDUGLUTIDE
     Indication: SHORT-BOWEL SYNDROME
     Dosage: 2.65 MG (0.05 OF DAILY DOSE MG KG AND 7 DOSES PER WEEK), UNK
     Route: 065
     Dates: start: 20180306, end: 201807
  8. KALIUMCHLORIDE [Concomitant]
     Indication: SHORT-BOWEL SYNDROME
  9. ANAESTHESULF [Concomitant]
     Indication: HERPES ZOSTER
  10. NUTRIFLEX LIPID [Concomitant]
     Active Substance: AMINO ACIDS\DEXTROSE\ELECTROLYTES NOS\SOYBEAN OIL
     Indication: PARENTERAL NUTRITION
  11. TEDUGLUTIDE [Suspect]
     Active Substance: TEDUGLUTIDE
     Dosage: 3 MG (0.05 DAILY DOSE MG KG AND 7 DOSES PER WEEK), UNK
     Route: 065
     Dates: start: 201807
  12. TEDUGLUTIDE [Suspect]
     Active Substance: TEDUGLUTIDE
     Indication: SHORT-BOWEL SYNDROME
     Dosage: 2.65 MG (0.05 OF DAILY DOSE MG KG AND 7 DOSES PER WEEK), UNK
     Route: 065
     Dates: start: 20180306, end: 201807

REACTIONS (1)
  - Vascular device infection [Recovered/Resolved]

NARRATIVE: CASE EVENT DATE: 201809
